FAERS Safety Report 6066074-X (Version None)
Quarter: 2009Q1

REPORT INFORMATION
  Report Type: 
  Country: None (occurrence: None)
  Receive Date: 20090205
  Receipt Date: 20090203
  Transmission Date: 20090719
  Serious: Yes (Other)
  Sender: FDA-Public Use
  Company Number: AU-ASTRAZENECA-2009AP00959

PATIENT
  Age: 48 Year
  Sex: Male

DRUGS (4)
  1. CRESTOR [Suspect]
     Indication: METABOLIC DISORDER
     Route: 048
     Dates: start: 20070712, end: 20070813
  2. ASPIRIN [Concomitant]
     Indication: METABOLIC DISORDER
     Dosage: LONG TERM
  3. FISH OIL [Concomitant]
  4. PLAVIX [Concomitant]
     Indication: MYOCARDIAL ISCHAEMIA
     Dosage: LONG TERM

REACTIONS (5)
  - ABDOMINAL PAIN [None]
  - BACK PAIN [None]
  - DIARRHOEA [None]
  - NAUSEA [None]
  - PANCREATITIS [None]
